FAERS Safety Report 18261002 (Version 2)
Quarter: 2020Q3

REPORT INFORMATION
  Report Type: Report from Study
  Country: ES (occurrence: ES)
  Receive Date: 20200914
  Receipt Date: 20200922
  Transmission Date: 20201103
  Serious: Yes (Hospitalization, Other)
  Sender: FDA-Public Use
  Company Number: ES-AUROBINDO-AUR-APL-2020-047884

PATIENT
  Age: 71 Year
  Sex: Female

DRUGS (5)
  1. QUETIAPINE. [Suspect]
     Active Substance: QUETIAPINE
     Indication: PRODUCT USED FOR UNKNOWN INDICATION
     Dosage: UNK
     Route: 065
  2. TAPENTADOL [Suspect]
     Active Substance: TAPENTADOL
     Dosage: 50 MILLIGRAM (80 TABLETS OF 50MG RETARD )
  3. FENOFIBRATE. [Suspect]
     Active Substance: FENOFIBRATE
     Indication: PRODUCT USED FOR UNKNOWN INDICATION
     Dosage: UNK
     Route: 065
  4. TAPENTADOL [Suspect]
     Active Substance: TAPENTADOL
     Indication: ANALGESIC THERAPY
     Dosage: 100 MILLIGRAM, TWO TIMES A DAY
     Route: 065
  5. TRAZODONE [Suspect]
     Active Substance: TRAZODONE HYDROCHLORIDE
     Indication: PRODUCT USED FOR UNKNOWN INDICATION
     Dosage: UNK
     Route: 065

REACTIONS (4)
  - Intentional overdose [Unknown]
  - False positive investigation result [Unknown]
  - Depressed level of consciousness [Unknown]
  - Toxicity to various agents [Unknown]
